FAERS Safety Report 7551291-X (Version None)
Quarter: 2011Q2

REPORT INFORMATION
  Report Type: 
  Country: None (occurrence: None)
  Receive Date: 20110616
  Receipt Date: 20110614
  Transmission Date: 20111010
  Serious: Yes (Life-Threatening, Hospitalization)
  Sender: FDA-Public Use
  Company Number: PHHO2011DE09009

PATIENT
  Sex: Female
  Weight: 84 kg

DRUGS (8)
  1. HEXAL [Concomitant]
     Indication: HYPOTHYROIDISM
     Dosage: UNK
     Dates: start: 19860101
  2. SCOPOLAMINE [Concomitant]
     Indication: ABDOMINAL PAIN
     Dosage: UNK
     Dates: start: 20110518
  3. GILENYA [Suspect]
     Indication: MULTIPLE SCLEROSIS
     Dosage: 0.5 MG, QD
     Route: 048
     Dates: start: 20110329, end: 20110519
  4. NOVAMINSULFON [Concomitant]
     Indication: ABDOMINAL PAIN
     Dosage: UNK
     Dates: start: 20110519
  5. LEVOTHYROXINE SODIUM [Concomitant]
     Indication: HYPOTHYROIDISM
     Dosage: UNK
     Dates: start: 19860101
  6. FLUCONAZOLE [Concomitant]
     Indication: ONYCHOMYCOSIS
     Dosage: UNK
     Dates: start: 20110302
  7. INFECTOTRIMET [Concomitant]
     Indication: CYSTITIS
     Dosage: UNK
     Dates: start: 20110511
  8. DRONABINOL [Concomitant]
     Indication: BLADDER DISORDER
     Dosage: UNK
     Dates: start: 20110510

REACTIONS (3)
  - ESCHERICHIA INFECTION [None]
  - HAEMOLYTIC URAEMIC SYNDROME [None]
  - COLITIS [None]
